FAERS Safety Report 7916949-9 (Version None)
Quarter: 2011Q4

REPORT INFORMATION
  Report Type: 
  Country: None (occurrence: None)
  Receive Date: 20111114
  Receipt Date: 20111025
  Transmission Date: 20120403
  Serious: Yes (Death, Hospitalization)
  Sender: FDA-Public Use
  Company Number: FK201102544

PATIENT
  Age: 60 Year
  Sex: Male

DRUGS (2)
  1. CARBOPLATIN [Suspect]
     Indication: NON-SMALL CELL LUNG CANCER
  2. PACLITAXEL [Suspect]
     Indication: NON-SMALL CELL LUNG CANCER

REACTIONS (2)
  - FEBRILE NEUTROPENIA [None]
  - SEPSIS [None]
